FAERS Safety Report 7680071-X (Version None)
Quarter: 2011Q3

REPORT INFORMATION
  Report Type: 
  Country: None (occurrence: None)
  Receive Date: 20110812
  Receipt Date: 20110802
  Transmission Date: 20111222
  Serious: Yes (Other)
  Sender: FDA-Public Use
  Company Number: US-ROCHE-776419

PATIENT
  Sex: Female
  Weight: 79.4 kg

DRUGS (2)
  1. ACCUTANE [Suspect]
     Indication: ACNE
     Route: 065
     Dates: start: 19960101, end: 19990101
  2. IBUPROFEN [Concomitant]

REACTIONS (5)
  - PAIN [None]
  - IRRITABLE BOWEL SYNDROME [None]
  - DEPRESSION [None]
  - OSTEOARTHRITIS [None]
  - DIARRHOEA [None]
